FAERS Safety Report 9132728 (Version 8)
Quarter: 2014Q2

REPORT INFORMATION
  Report Type: Report from Study
  Country: CA (occurrence: CA)
  Receive Date: 20130301
  Receipt Date: 20140423
  Transmission Date: 20141212
  Serious: Yes (Other)
  Sender: FDA-Public Use
  Company Number: CA-ROCHE-1196189

PATIENT
  Age: 48 Year
  Sex: Female
  Weight: 64.9 kg

DRUGS (13)
  1. RITUXAN [Suspect]
     Indication: RHEUMATOID ARTHRITIS
     Dosage: LAST DOSE WAS RECEIVED ON 12/FEB/2013?PREVIOUS DOSE OF RITUXIMAB WAS ON 18/APR/2013.
     Route: 042
     Dates: start: 20120127
  2. DIPHENHYDRAMINE HCL [Concomitant]
     Indication: PREMEDICATION
     Route: 048
     Dates: start: 20120127
  3. ACETAMINOPHEN [Concomitant]
     Indication: PREMEDICATION
     Route: 048
     Dates: start: 20120127
  4. METHYLPREDNISOLONE [Concomitant]
     Indication: PREMEDICATION
     Route: 042
     Dates: start: 20120127
  5. METHOTREXATE [Concomitant]
  6. PLAQUENIL [Concomitant]
  7. MOBICOX [Concomitant]
  8. NEURONTIN (CANADA) [Concomitant]
  9. TYLENOL #3 (CANADA) [Concomitant]
  10. OXYCONTIN [Concomitant]
  11. CLONAZEPAM [Concomitant]
  12. FOLIC ACID [Concomitant]
  13. CORTISONE [Concomitant]
     Route: 065

REACTIONS (9)
  - Abdominal pain [Recovering/Resolving]
  - Nephrolithiasis [Not Recovered/Not Resolved]
  - Chest pain [Recovering/Resolving]
  - Bone development abnormal [Unknown]
  - Vomiting [Not Recovered/Not Resolved]
  - Weight decreased [Not Recovered/Not Resolved]
  - Arthralgia [Not Recovered/Not Resolved]
  - Fatigue [Recovering/Resolving]
  - Rhinitis [Recovered/Resolved]
